FAERS Safety Report 11783064 (Version 1)
Quarter: 2015Q4

REPORT INFORMATION
  Report Type: Spontaneous
  Country: US (occurrence: US)
  Receive Date: 20151127
  Receipt Date: 20151127
  Transmission Date: 20160305
  Serious: Yes (Death, Other)
  Sender: FDA-Public Use
  Company Number: US-MEDA-2015110112

PATIENT
  Age: 18 Year
  Sex: Female

DRUGS (4)
  1. METAXALONE. [Suspect]
     Active Substance: METAXALONE
  2. DIAZEPAM. [Suspect]
     Active Substance: DIAZEPAM
  3. ZOLPIDEM [Suspect]
     Active Substance: ZOLPIDEM\ZOLPIDEM TARTRATE
  4. NORDIAZEPAM [Suspect]
     Active Substance: NORDAZEPAM

REACTIONS (8)
  - Dehydration [Unknown]
  - Vomiting [Unknown]
  - Hepatic function abnormal [Unknown]
  - Anaemia [Unknown]
  - Myalgia [Unknown]
  - Nausea [Unknown]
  - Death [Fatal]
  - Renal failure [Unknown]
